FAERS Safety Report 5618319-5 (Version None)
Quarter: 2008Q1

REPORT INFORMATION
  Report Type: 
  Country: None (occurrence: None)
  Receive Date: 20080205
  Receipt Date: 20080205
  Transmission Date: 20080703
  Serious: Yes (Death)
  Sender: FDA-Public Use
  Company Number: None

PATIENT
  Sex: Female
  Weight: 68.9467 kg

DRUGS (2)
  1. GEMCITABINE [Suspect]
     Indication: PANCREATIC CARCINOMA METASTATIC
     Dosage: 1000MG/M2  DAY 2 + 15/Q 28 D  IV DRIP
     Route: 041
     Dates: start: 20070913, end: 20080109
  2. BEVACIZUMAB    GENENTECH [Suspect]
     Indication: PANCREATIC CARCINOMA METASTATIC
     Dosage: 10MG/KG  X1  IV DRIP
     Route: 041
     Dates: start: 20080109, end: 20080109

REACTIONS (2)
  - PAIN [None]
  - PULMONARY EMBOLISM [None]
